FAERS Safety Report 19017667 (Version 2)
Quarter: 2021Q2

REPORT INFORMATION
  Report Type: Report from Study
  Country: US (occurrence: US)
  Receive Date: 20210317
  Receipt Date: 20210408
  Transmission Date: 20210717
  Serious: Yes (Other)
  Sender: FDA-Public Use
  Company Number: US-PFIZER INC-2021252750

PATIENT
  Age: 58 Year

DRUGS (2)
  1. PENTOSTATIN. [Suspect]
     Active Substance: PENTOSTATIN
     Indication: LYMPHOPROLIFERATIVE DISORDER
     Dosage: 1.0 UNK, TREATMENT DAYS 1,11,12,23?25 (TOTAL DOSE 6.25 MG/KG)
  2. PENTOSTATIN. [Suspect]
     Active Substance: PENTOSTATIN
     Indication: ACUTE LYMPHOCYTIC LEUKAEMIA

REACTIONS (2)
  - Cardiac failure congestive [Unknown]
  - Pulmonary oedema [Unknown]
